FAERS Safety Report 18113562 (Version 1)
Quarter: 2020Q3

REPORT INFORMATION
  Report Type: Spontaneous
  Country: US (occurrence: US)
  Receive Date: 20200805
  Receipt Date: 20200805
  Transmission Date: 20201103
  Serious: Yes (Hospitalization)
  Sender: FDA-Public Use
  Company Number: None

PATIENT
  Sex: Female

DRUGS (1)
  1. CYCLOPHOSPHAMIDE. [Suspect]
     Active Substance: CYCLOPHOSPHAMIDE
     Indication: OVARIAN CANCER
     Route: 048
     Dates: start: 20200625

REACTIONS (12)
  - Renal artery stent placement [None]
  - Transfusion [None]
  - Urinary incontinence [None]
  - Blood disorder [None]
  - Fatigue [None]
  - Metastases to kidney [None]
  - Nephrolithiasis [None]
  - Chromaturia [None]
  - Hypovolaemia [None]
  - Haemorrhage [None]
  - Bladder pain [None]
  - Weight decreased [None]
